FAERS Safety Report 24349282 (Version 1)
Quarter: 2024Q3

REPORT INFORMATION
  Report Type: Spontaneous
  Country: GB (occurrence: GB)
  Receive Date: 20240923
  Receipt Date: 20240923
  Transmission Date: 20241016
  Serious: Yes (Life-Threatening, Hospitalization, Congenital Anomaly, Other)
  Sender: SANDOZ
  Company Number: None

PATIENT
  Age: 37 Year
  Sex: Female
  Weight: 70 kg

DRUGS (2)
  1. PENICILLIN G [Suspect]
     Active Substance: PENICILLIN G
     Indication: Prolonged rupture of membranes
     Dosage: 3 G
     Route: 065
     Dates: start: 20240918, end: 20240918
  2. NITROUS OXIDE\OXYGEN [Concomitant]
     Active Substance: NITROUS OXIDE\OXYGEN
     Indication: Analgesic therapy
     Dosage: UNK
     Route: 065
     Dates: start: 20240918, end: 20240918

REACTIONS (2)
  - Anaphylactic reaction [Recovering/Resolving]
  - Maternal exposure during pregnancy [Unknown]

NARRATIVE: CASE EVENT DATE: 20240918
